FAERS Safety Report 9377984 (Version 1)
Quarter: 2013Q3

REPORT INFORMATION
  Report Type: Spontaneous
  Country: JP (occurrence: JP)
  Receive Date: 20130701
  Receipt Date: 20130701
  Transmission Date: 20140515
  Serious: Yes (Hospitalization)
  Sender: FDA-Public Use
  Company Number: JP-ELI_LILLY_AND_COMPANY-JP201306006220

PATIENT
  Age: 16 Year
  Sex: Male

DRUGS (2)
  1. STRATTERA [Suspect]
     Indication: ATTENTION DEFICIT/HYPERACTIVITY DISORDER
     Dosage: 70 MG, UNK
     Route: 048
  2. RISPERIDONE [Suspect]
     Indication: IRRITABILITY
     Dosage: 0.5 MG, UNK
     Route: 048
     Dates: start: 20130619, end: 20130619

REACTIONS (1)
  - Neuroleptic malignant syndrome [Unknown]
